FAERS Safety Report 9310596 (Version 2)
Quarter: 2013Q3

REPORT INFORMATION
  Report Type: Spontaneous
  Country: US (occurrence: US)
  Receive Date: 20130527
  Receipt Date: 20130828
  Transmission Date: 20140515
  Serious: Yes (Death, Hospitalization)
  Sender: FDA-Public Use
  Company Number: US-PFIZER INC-2013159777

PATIENT
  Age: 52 Year
  Sex: Male

DRUGS (1)
  1. RAPAMUNE [Suspect]
     Indication: LIVER TRANSPLANT
     Dosage: 1 MG, DAILY
     Dates: start: 20110603

REACTIONS (3)
  - Liver disorder [Fatal]
  - Renal disorder [Unknown]
  - Off label use [Unknown]
